FAERS Safety Report 17660566 (Version 2)
Quarter: 2020Q2

REPORT INFORMATION
  Report Type: Spontaneous
  Country: CA (occurrence: CA)
  Receive Date: 20200413
  Receipt Date: 20200422
  Transmission Date: 20200713
  Serious: Yes (Death, Life-Threatening, Hospitalization)
  Sender: FDA-Public Use
  Company Number: CA-PFIZER INC-2020147928

PATIENT
  Age: 83 Year
  Sex: Female

DRUGS (2)
  1. IBRANCE [Suspect]
     Active Substance: PALBOCICLIB
     Dosage: 125MG PO DAILY X 21 DAYS, OFF 7DAYS
     Route: 048
     Dates: start: 20200316
  2. FASLODEX [Concomitant]
     Active Substance: FULVESTRANT

REACTIONS (5)
  - Heart rate decreased [Recovered/Resolved]
  - Dizziness [Unknown]
  - Death [Fatal]
  - Oropharyngeal pain [Unknown]
  - Dry mouth [Unknown]
